FAERS Safety Report 5794063-9 (Version None)
Quarter: 2008Q2

REPORT INFORMATION
  Report Type: 
  Country: None (occurrence: None)
  Receive Date: 20080627
  Receipt Date: 20080618
  Transmission Date: 20081010
  Serious: Yes (Hospitalization, Other)
  Sender: FDA-Public Use
  Company Number: US-ABBOTT-08P-163-0459008-00

PATIENT
  Sex: Male
  Weight: 108.96 kg

DRUGS (10)
  1. HUMIRA [Suspect]
     Indication: RHEUMATOID ARTHRITIS
     Route: 058
     Dates: start: 20070401
  2. HUMIRA [Suspect]
     Dosage: PRE-FILLED SYRINGE
     Route: 058
     Dates: start: 20060501, end: 20070401
  3. AMLODIPINE BESYLATE [Concomitant]
     Indication: HYPERTENSION
     Route: 048
     Dates: start: 20040101
  4. CLOPIDOGREL [Concomitant]
     Indication: CATHETERISATION CARDIAC
     Route: 048
     Dates: start: 20071201
  5. FUROSEMIDE [Concomitant]
     Indication: CATHETERISATION CARDIAC
     Route: 048
     Dates: start: 20061201
  6. PREDNISONE [Concomitant]
     Indication: RHEUMATOID ARTHRITIS
     Route: 048
     Dates: start: 20040101
  7. ASPIRIN [Concomitant]
     Indication: CARDIOVASCULAR EVENT PROPHYLAXIS
     Route: 048
     Dates: start: 20040101
  8. LANSOPRAZOLE [Concomitant]
     Indication: GASTROOESOPHAGEAL REFLUX DISEASE
     Route: 048
     Dates: start: 19840101, end: 20080401
  9. ESOMEPRAZOLE MAGNESIUM [Concomitant]
     Indication: GASTROOESOPHAGEAL REFLUX DISEASE
     Route: 048
     Dates: start: 20080401
  10. TYLOX [Concomitant]
     Indication: PAIN
     Dosage: 10/650 MG, 3-4 PILLS DAILY AS NEEDED
     Route: 048
     Dates: start: 20050101

REACTIONS (7)
  - ABDOMINAL PAIN [None]
  - ARTHRALGIA [None]
  - CHEST PAIN [None]
  - CHOLECYSTECTOMY [None]
  - INJECTION SITE BRUISING [None]
  - INJECTION SITE LACERATION [None]
  - JOINT SWELLING [None]
